FAERS Safety Report 9669857 (Version 1)
Quarter: 2013Q4

REPORT INFORMATION
  Report Type: Spontaneous
  Country: US (occurrence: US)
  Receive Date: 20131105
  Receipt Date: 20131105
  Transmission Date: 20140711
  Serious: Yes (Disabling)
  Sender: FDA-Public Use
  Company Number: US-PFIZER INC-2013315856

PATIENT
  Age: 45 Year
  Sex: Female
  Weight: 68 kg

DRUGS (4)
  1. LYRICA [Suspect]
     Indication: NERVOUS SYSTEM DISORDER
     Dosage: 125 MG, 3X/DAY
     Dates: end: 201310
  2. ADVAIR [Concomitant]
     Indication: ASTHMA
     Dosage: 250/50 MG
  3. COMBIVENT [Concomitant]
     Indication: ASTHMA
     Dosage: UNK, EVERY ONE HOUR
  4. EFFEXOR-XR [Concomitant]
     Indication: ANXIETY
     Dosage: 225 MG, 1X/DAY

REACTIONS (1)
  - Back disorder [Unknown]
